FAERS Safety Report 4865428-4 (Version None)
Quarter: 2005Q4

REPORT INFORMATION
  Report Type: 
  Country: None (occurrence: None)
  Receive Date: 20051220
  Receipt Date: 20051122
  Transmission Date: 20060501
  Serious: Yes (Hospitalization)
  Sender: FDA-Public Use
  Company Number: AE2005-0486

PATIENT
  Age: 14 Year
  Sex: Female
  Weight: 72.5755 kg

DRUGS (2)
  1. MUCINEX DM (GUAIFENESIN/DEXTROMETHORPHAN HBR) [Suspect]
     Indication: COUGH
     Dosage: MG ONCE ORAL
     Route: 048
     Dates: start: 20051118, end: 20051118
  2. ADDERALL 10 [Concomitant]

REACTIONS (7)
  - AGGRESSION [None]
  - BLOOD PRESSURE INCREASED [None]
  - CONFUSIONAL STATE [None]
  - HEART RATE INCREASED [None]
  - MOTOR DYSFUNCTION [None]
  - MYDRIASIS [None]
  - PSYCHOMOTOR HYPERACTIVITY [None]
